FAERS Safety Report 6721178-0 (Version None)
Quarter: 2010Q2

REPORT INFORMATION
  Report Type: 
  Country: None (occurrence: None)
  Receive Date: 20100512
  Receipt Date: 20100512
  Transmission Date: 20101027
  Serious: Yes (Other)
  Sender: FDA-Public Use
  Company Number: None

PATIENT
  Age: 8 Year
  Sex: Female
  Weight: 30.8446 kg

DRUGS (1)
  1. CHILDREN'S BENADRYL ALLERGY [Suspect]
     Indication: MIDDLE EAR EFFUSION
     Dosage: 1 1/2 TEASPOONFULS TWICE PER DAY PO
     Route: 048
     Dates: start: 20100416, end: 20100423

REACTIONS (6)
  - DIZZINESS [None]
  - DRUG EFFECT DECREASED [None]
  - FEELING ABNORMAL [None]
  - LABYRINTHITIS [None]
  - PRODUCT QUALITY ISSUE [None]
  - VERTIGO [None]
